FAERS Safety Report 19019641 (Version 1)
Quarter: 2021Q1

REPORT INFORMATION
  Report Type: Spontaneous
  Country: US (occurrence: US)
  Receive Date: 20210316
  Receipt Date: 20210316
  Transmission Date: 20210420
  Serious: Yes (Hospitalization, Other)
  Sender: FDA-Public Use
  Company Number: US-VALIDUS PHARMACEUTICALS LLC-US-2021VAL000606

PATIENT

DRUGS (4)
  1. DEMEROL [Suspect]
     Active Substance: MEPERIDINE HYDROCHLORIDE
     Indication: PAIN
     Dosage: 12.5 MG, OF DEMEROL
     Route: 030
  2. PHENERGAN [Suspect]
     Active Substance: PROMETHAZINE HYDROCHLORIDE
     Indication: PAIN
     Dosage: 12.5 MG, OF PHENERGAN
     Route: 030
  3. PHENERGAN [Suspect]
     Active Substance: PROMETHAZINE HYDROCHLORIDE
     Indication: NAUSEA
  4. DEMEROL [Suspect]
     Active Substance: MEPERIDINE HYDROCHLORIDE
     Indication: NAUSEA

REACTIONS (13)
  - Embolia cutis medicamentosa [Recovering/Resolving]
  - Myositis [Recovering/Resolving]
  - Muscle injury [Recovering/Resolving]
  - Soft tissue swelling [Recovering/Resolving]
  - Muscle necrosis [Recovering/Resolving]
  - Peripheral swelling [Recovering/Resolving]
  - White blood cell count increased [Recovering/Resolving]
  - Injection site pain [Recovering/Resolving]
  - Excessive granulation tissue [Recovering/Resolving]
  - Skin haemorrhage [Recovering/Resolving]
  - Pain [Recovering/Resolving]
  - Epidermolysis [Recovering/Resolving]
  - Ecchymosis [Recovering/Resolving]
